FAERS Safety Report 8767999 (Version 5)
Quarter: 2012Q4

REPORT INFORMATION
  Report Type: 
  Country: US (occurrence: US)
  Receive Date: 20120905
  Receipt Date: 20121029
  Transmission Date: 20130627
  Serious: No
  Sender: FDA-Public Use
  Company Number: US-009507513-2011SP034091

PATIENT
  Age: 18 Year
  Sex: Female
  Weight: 122.93 kg

DRUGS (1)
  1. IMPLANON [Suspect]
     Dosage: UNK
     Route: 059
     Dates: start: 201102

REACTIONS (4)
  - Weight increased [Not Recovered/Not Resolved]
  - Device dislocation [Unknown]
  - Medical device complication [Unknown]
  - Medical device complication [Unknown]
